FAERS Safety Report 4608204-X (Version None)
Quarter: 2005Q1

REPORT INFORMATION
  Report Type: 
  Country: None (occurrence: None)
  Receive Date: 20050311
  Receipt Date: 20050228
  Transmission Date: 20050727
  Serious: Yes (Life-Threatening)
  Sender: FDA-Public Use
  Company Number: 2005039939

PATIENT
  Age: 59 Year
  Sex: Female

DRUGS (6)
  1. CELEBREX [Suspect]
     Indication: OSTEOARTHRITIS
     Dosage: 200 MG (100 MG, 2 IN 1 D), ORAL
     Route: 048
     Dates: start: 20010601, end: 20050106
  2. BENDROFLUMETHIAZIDE (BENDROFLUMETHIAZIDE) [Concomitant]
  3. FERROUS SULFATE TAB [Concomitant]
  4. DICLOFENAC SODIUM [Concomitant]
  5. OMEPRAZOLE [Concomitant]
  6. PAROXETINE HCL [Concomitant]

REACTIONS (1)
  - MYOCARDIAL INFARCTION [None]
